FAERS Safety Report 25873183 (Version 1)
Quarter: 2025Q4

REPORT INFORMATION
  Report Type: Spontaneous
  Country: CA (occurrence: CA)
  Receive Date: 20251002
  Receipt Date: 20251002
  Transmission Date: 20260119
  Serious: Yes (Other)
  Sender: NOVARTIS
  Company Number: CA-SANDOZ-SDZ2025CA069952

PATIENT
  Age: 41 Year
  Sex: Male

DRUGS (2)
  1. DEFERASIROX [Suspect]
     Active Substance: DEFERASIROX
     Indication: Blood iron increased
     Dosage: 810 MG, QD (1 EVERY 1 DAYS)
     Route: 048
  2. DEFERASIROX [Suspect]
     Active Substance: DEFERASIROX
     Indication: Anaemia
     Dosage: 720 MG, QD (1 EVERY 1 DAYS)
     Route: 048

REACTIONS (1)
  - Gallbladder disorder [Unknown]
